FAERS Safety Report 21292840 (Version 1)
Quarter: 2022Q3

REPORT INFORMATION
  Report Type: Spontaneous
  Country: US (occurrence: US)
  Receive Date: 20220905
  Receipt Date: 20220905
  Transmission Date: 20221027
  Serious: No
  Sender: FDA-Public Use
  Company Number: US-VIIV HEALTHCARE LIMITED-US2022123168

PATIENT
  Age: 42 Year
  Sex: Male

DRUGS (5)
  1. RILPIVIRINE [Interacting]
     Active Substance: RILPIVIRINE
     Indication: HIV infection
     Dosage: ML, Z, EVERY 2 MONTHS
     Route: 030
  2. RILPIVIRINE [Interacting]
     Active Substance: RILPIVIRINE
     Dosage: 600 MG, Z, MONTHLY
     Route: 030
  3. CABOTEGRAVIR [Interacting]
     Active Substance: CABOTEGRAVIR
     Indication: HIV infection
     Dosage: 3 ML, Z, EVERY 2 MONTHS
     Route: 065
  4. CABOTEGRAVIR [Interacting]
     Active Substance: CABOTEGRAVIR
     Dosage: 600 MG, Z, MONTHLY
     Route: 065
  5. DEXAMETHASONE [Interacting]
     Active Substance: DEXAMETHASONE
     Indication: Sinusitis
     Dosage: UNK
     Route: 065

REACTIONS (2)
  - Viral load increased [Not Recovered/Not Resolved]
  - Labelled drug-drug interaction medication error [Not Recovered/Not Resolved]
